FAERS Safety Report 5839220-8 (Version None)
Quarter: 2008Q3

REPORT INFORMATION
  Report Type: 
  Country: None (occurrence: None)
  Receive Date: 20080808
  Receipt Date: 20080728
  Transmission Date: 20090109
  Serious: Yes (Hospitalization, Other)
  Sender: FDA-Public Use
  Company Number: AR-PFIZER INC-2008061055

PATIENT
  Age: 51 Year
  Sex: Female

DRUGS (1)
  1. SUTENT [Suspect]
     Indication: RENAL CANCER STAGE IV
     Route: 048

REACTIONS (4)
  - DISEASE PROGRESSION [None]
  - ELECTROCARDIOGRAM CHANGE [None]
  - HYPERTENSION [None]
  - RENAL CANCER STAGE IV [None]
